FAERS Safety Report 4793577-8 (Version None)
Quarter: 2005Q4

REPORT INFORMATION
  Report Type: 
  Country: None (occurrence: None)
  Receive Date: 20051006
  Receipt Date: 20050919
  Transmission Date: 20060501
  Serious: Yes (Death)
  Sender: FDA-Public Use
  Company Number: AND_0190_2005

PATIENT
  Age: 24 Year
  Sex: 0

DRUGS (2)
  1. ACETAMINOPHEN W/ PROPOXYPHENE HCL [Suspect]
     Dosage: DF
  2. OXYCODONE HCL [Suspect]
     Dosage: DF

REACTIONS (5)
  - CARDIAC ARREST [None]
  - DRUG ABUSER [None]
  - INTENTIONAL DRUG MISUSE [None]
  - MULTIPLE DRUG OVERDOSE [None]
  - RESPIRATORY ARREST [None]
